FAERS Safety Report 23305221 (Version 1)
Quarter: 2023Q4

REPORT INFORMATION
  Report Type: Report from Study
  Country: IN (occurrence: IN)
  Receive Date: 20231218
  Receipt Date: 20231218
  Transmission Date: 20240110
  Serious: Yes (Other)
  Sender: FDA-Public Use
  Company Number: IN-002147023-NVSC2023IN222984

PATIENT
  Age: 43 Year
  Sex: Male

DRUGS (2)
  1. BROLUCIZUMAB [Suspect]
     Active Substance: BROLUCIZUMAB
     Indication: Choroidal neovascularisation
     Dosage: 0.05 ML, PRN
     Route: 047
     Dates: start: 20230706
  2. BROLUCIZUMAB [Suspect]
     Active Substance: BROLUCIZUMAB
     Dosage: 0.05 ML, PRN (AS NEEDED)
     Route: 047
     Dates: start: 20230711

REACTIONS (3)
  - Blood glucose increased [Unknown]
  - Pyrexia [Recovered/Resolved]
  - Blood glucose fluctuation [Unknown]

NARRATIVE: CASE EVENT DATE: 20230924
